FAERS Safety Report 7242759-4 (Version None)
Quarter: 2011Q1

REPORT INFORMATION
  Report Type: 
  Country: None (occurrence: None)
  Receive Date: 20110114
  Receipt Date: 20110106
  Transmission Date: 20110831
  Serious: Yes (Other)
  Sender: FDA-Public Use
  Company Number: 023891

PATIENT

DRUGS (5)
  1. KEPPRA [Suspect]
     Indication: EPILEPSY
     Dosage: 1000 MG PRIOR TO CONCEPTION TRANSPLAENTAL, 1500 MG TANSPLACENTAL, 2000 MG TRANSPLACENAL
     Route: 064
     Dates: start: 20101201
  2. KEPPRA [Suspect]
     Indication: EPILEPSY
     Dosage: 1000 MG PRIOR TO CONCEPTION TRANSPLAENTAL, 1500 MG TANSPLACENTAL, 2000 MG TRANSPLACENAL
     Route: 064
     Dates: end: 20101014
  3. KEPPRA [Suspect]
     Indication: EPILEPSY
     Dosage: 1000 MG PRIOR TO CONCEPTION TRANSPLAENTAL, 1500 MG TANSPLACENTAL, 2000 MG TRANSPLACENAL
     Route: 064
     Dates: start: 20101015, end: 20101130
  4. FOLIC ACID [Concomitant]
  5. PRENATAL VITAMINS/01549301/ [Concomitant]

REACTIONS (2)
  - KIDNEY ENLARGEMENT [None]
  - MATERNAL DRUGS AFFECTING FOETUS [None]
